FAERS Safety Report 5321272-5 (Version None)
Quarter: 2007Q2

REPORT INFORMATION
  Report Type: 
  Country: None (occurrence: None)
  Receive Date: 20070507
  Receipt Date: 20070507
  Transmission Date: 20071010
  Serious: Yes (Hospitalization)
  Sender: FDA-Public Use
  Company Number: None

PATIENT
  Age: 50 Year
  Sex: Female
  Weight: 63.9572 kg

DRUGS (3)
  1. RIFAXIMIN SALIX PHARMACEUTICALS [Suspect]
     Indication: HEPATIC ENCEPHALOPATHY
     Dosage: 400 MG, TID, ORALLY
     Route: 048
     Dates: start: 20061205
  2. LACTULOSE [Suspect]
     Indication: HEPATIC ENCEPHALOPATHY
     Dosage: 30 MG TID, ORALLY
     Route: 048
     Dates: start: 20060111
  3. PLACEBO [Suspect]

REACTIONS (7)
  - ANAEMIA [None]
  - COAGULOPATHY [None]
  - COLITIS [None]
  - HEPATIC CIRRHOSIS [None]
  - LOWER GASTROINTESTINAL HAEMORRHAGE [None]
  - RECTAL HAEMORRHAGE [None]
  - THROMBOCYTOPENIA [None]
